FAERS Safety Report 4647976-5 (Version None)
Quarter: 2005Q2

REPORT INFORMATION
  Report Type: 
  Country: None (occurrence: None)
  Receive Date: 20050331
  Receipt Date: 20050209
  Transmission Date: 20051028
  Serious: No
  Sender: FDA-Public Use
  Company Number: 05P-163-0289968-00

PATIENT
  Age: 64 Year
  Sex: Female
  Weight: 61.6892 kg

DRUGS (12)
  1. HUMIRA [Suspect]
     Indication: RHEUMATOID ARTHRITIS
     Dosage: 40 MG, 1IN 2 WK, SUBCUTANEOUS
     Route: 058
     Dates: start: 20030201
  2. ISONIAZID [Concomitant]
  3. METHOTREXATE [Concomitant]
  4. GLIBENCLAMIDE [Concomitant]
  5. METFORMIN HCL [Concomitant]
  6. FLUOXETINE HCL [Concomitant]
  7. FOLIC ACID [Concomitant]
  8. ALPRAZOLAM [Concomitant]
  9. CALCIUM GLUCONATE [Concomitant]
  10. RETINOL [Concomitant]
  11. TOCOPHEROL CONCENTRATE CAP [Concomitant]
  12. ASCORBIC ACID [Concomitant]

REACTIONS (2)
  - COUGH [None]
  - LARYNGITIS [None]
